FAERS Safety Report 6025620-2 (Version None)
Quarter: 2008Q4

REPORT INFORMATION
  Report Type: 
  Country: None (occurrence: None)
  Receive Date: 20081231
  Receipt Date: 20081229
  Transmission Date: 20090506
  Serious: Yes (Hospitalization)
  Sender: FDA-Public Use
  Company Number: US-B.I. PHARMACEUTICALS,INC./RIDGEFIELD-2008-BP-19182BP

PATIENT
  Sex: Female

DRUGS (1)
  1. ATROVENT HFA [Suspect]
     Indication: EMPHYSEMA
     Dosage: 6PUF
     Route: 055
     Dates: start: 19940101

REACTIONS (2)
  - ATRIAL FIBRILLATION [None]
  - JOINT SWELLING [None]
